FAERS Safety Report 8180097-6 (Version None)
Quarter: 2012Q1

REPORT INFORMATION
  Report Type: 
  Country: None (occurrence: None)
  Receive Date: 20120302
  Receipt Date: 20120302
  Transmission Date: 20120608
  Serious: Yes (Hospitalization)
  Sender: FDA-Public Use
  Company Number: None

PATIENT
  Sex: Female
  Weight: 73.028 kg

DRUGS (1)
  1. PAXIL [Suspect]
     Indication: DEPRESSION
     Dosage: 60.0 MG
     Route: 048
     Dates: start: 20090101, end: 20120227

REACTIONS (11)
  - DRUG WITHDRAWAL SYNDROME [None]
  - BALANCE DISORDER [None]
  - PSYCHOTIC DISORDER [None]
  - VISION BLURRED [None]
  - DEPRESSION SUICIDAL [None]
  - DRUG DEPENDENCE [None]
  - APHASIA [None]
  - HOSTILITY [None]
  - MANIA [None]
  - COGNITIVE DISORDER [None]
  - EMOTIONAL DISORDER [None]
